FAERS Safety Report 21655285 (Version 1)
Quarter: 2022Q4

REPORT INFORMATION
  Report Type: Report from Study
  Country: US (occurrence: US)
  Receive Date: 20221129
  Receipt Date: 20221129
  Transmission Date: 20230112
  Serious: No
  Sender: FDA-Public Use
  Company Number: US-ABBVIE-4184587

PATIENT
  Age: 60 Year
  Sex: Female

DRUGS (4)
  1. HUMIRA [Suspect]
     Active Substance: ADALIMUMAB
     Indication: Psoriasis
     Dosage: CITRATE FREE, RECEIVED 2 PENS 40MG DOSE WITH INSTRUCTIONS TO USE BOTH ON DAY 1
     Route: 058
     Dates: start: 20221031
  2. Pfizer/BioNTech Covid-19 Vaccination [Concomitant]
     Indication: COVID-19 immunisation
     Dosage: 1 ST DOSE -  ONCE
     Route: 030
  3. Pfizer/BioNTech Covid-19 Vaccination [Concomitant]
     Indication: COVID-19 immunisation
     Dosage: 2ND DOSE -  ONCE
     Route: 030
  4. Pfizer/BioNTech Covid-19 Vaccination [Concomitant]
     Indication: COVID-19 immunisation
     Dosage: 3RD BOOSTER DOSE -  ONCE
     Route: 030

REACTIONS (1)
  - Product dispensing error [Unknown]

NARRATIVE: CASE EVENT DATE: 20221031
